FAERS Safety Report 8699043 (Version 2)
Quarter: 2013Q4

REPORT INFORMATION
  Report Type: Report from Study
  Country: FR (occurrence: FR)
  Receive Date: 20120802
  Receipt Date: 20131031
  Transmission Date: 20140711
  Serious: Yes (Hospitalization)
  Sender: FDA-Public Use
  Company Number: FR-009507513-1207FRA012402

PATIENT
  Age: 81 Year
  Sex: Female
  Weight: 165 kg

DRUGS (6)
  1. MK-0683 [Suspect]
     Indication: MYELODYSPLASTIC SYNDROME
     Dosage: 400 MG, QD
     Route: 048
     Dates: start: 20110209, end: 20110222
  2. ARACYTINE [Suspect]
     Indication: MYELODYSPLASTIC SYNDROME
     Dosage: 19.7 MG, QD
     Route: 058
     Dates: start: 20110209, end: 20110222
  3. TENORETIC [Concomitant]
     Indication: HYPERTENSION
     Dosage: 1 DF, QD
     Route: 048
  4. CORTANCYL [Concomitant]
     Indication: OSTEOARTHRITIS
     Dosage: 2.5 MG, QD
     Route: 048
  5. DEROXAT [Concomitant]
     Dosage: 20 MG, QD
  6. DIFFU-K [Concomitant]
     Indication: HYPOKALAEMIA
     Dosage: 2 DF, QD
     Route: 048

REACTIONS (4)
  - Febrile bone marrow aplasia [Recovered/Resolved]
  - Thrombocytopenia [Recovered/Resolved]
  - Thrombocytopenia [Recovered/Resolved]
  - Haematuria [Recovered/Resolved]
